FAERS Safety Report 21364097 (Version 1)
Quarter: 2022Q3

REPORT INFORMATION
  Report Type: Spontaneous
  Country: US (occurrence: US)
  Receive Date: 20220922
  Receipt Date: 20220922
  Transmission Date: 20221027
  Serious: Yes (Life-Threatening, Hospitalization, Other)
  Sender: FDA-Public Use
  Company Number: US-PFIZER INC-PV202200060815

PATIENT
  Age: 14 Year
  Sex: Female

DRUGS (2)
  1. CLINDAMYCIN PHOSPHATE [Suspect]
     Active Substance: CLINDAMYCIN PHOSPHATE
     Indication: Kidney enlargement
     Dosage: UNK
  2. CEFTRIAXONE [Suspect]
     Active Substance: CEFTRIAXONE
     Indication: Kidney enlargement
     Dosage: UNK

REACTIONS (7)
  - Toxic shock syndrome [Recovered/Resolved]
  - Adverse drug reaction [Recovered/Resolved]
  - COVID-19 [Recovered/Resolved]
  - Multisystem inflammatory syndrome in children [Recovered/Resolved]
  - Sepsis [Recovered/Resolved]
  - Vasculitis [Recovered/Resolved]
  - Autoimmune disorder [Recovered/Resolved]
